FAERS Safety Report 8461774-6 (Version None)
Quarter: 2012Q2

REPORT INFORMATION
  Report Type: 
  Country: None (occurrence: None)
  Receive Date: 20120625
  Receipt Date: 20120613
  Transmission Date: 20120825
  Serious: Yes (Hospitalization)
  Sender: FDA-Public Use
  Company Number: US-BRISTOL-MYERS SQUIBB COMPANY-16542862

PATIENT
  Age: 64 Year
  Sex: Male

DRUGS (4)
  1. ASPIRIN [Concomitant]
     Indication: CORONARY ARTERY DISEASE
     Dosage: 81MG
     Dates: start: 20111229, end: 20120207
  2. YERVOY [Suspect]
     Indication: METASTATIC MALIGNANT MELANOMA
     Dosage: ON 6THDEC;250MG,29THDEC 300 UNITS NOT SPECIFIED,23JAN12 FULL DOSE,RESTARTED 2WKS AFTER 3RD DOSE
     Route: 042
     Dates: start: 20111206
  3. AMLODIPINE [Concomitant]
     Dosage: SINCE BEFORE 2009
  4. ENOXAPARIN [Suspect]
     Indication: THROMBOSIS PROPHYLAXIS
     Route: 058

REACTIONS (2)
  - HAEMORRHAGE INTRACRANIAL [None]
  - CHEST PAIN [None]
